FAERS Safety Report 8927579 (Version 2)
Quarter: 2012Q4

REPORT INFORMATION
  Report Type: 
  Country: US (occurrence: US)
  Receive Date: 20121127
  Receipt Date: 20121220
  Transmission Date: 20130627
  Serious: Yes (Other)
  Sender: FDA-Public Use
  Company Number: US-PFIZER INC-2012292295

PATIENT
  Age: 98 Year
  Sex: Female

DRUGS (9)
  1. REVATIO [Suspect]
     Indication: PULMONARY HYPERTENSION
     Dosage: 20 mg, 3x/day
     Dates: start: 20120417, end: 20120523
  2. AMBRISENTAN [Suspect]
     Indication: PULMONARY HYPERTENSION
     Dosage: 5 mg, UNK
  3. BUMEX [Concomitant]
     Dosage: ) 1 mg tablet, 4 tabs am, 3 tabs afternoon, 2 times a day
  4. DIGOXIN [Concomitant]
     Dosage: 0.125 mg, 1x/day
  5. DOCUSATE SODIUM [Concomitant]
     Dosage: 100 mg, 2x/day
  6. GLIMEPIRIDE [Concomitant]
     Dosage: 1 mg, 1x/day
  7. METOPROLOL [Concomitant]
     Dosage: 25 mg, 1x/day
  8. SENNA [Concomitant]
     Dosage: UNK
  9. SPIRONOLACTONE [Concomitant]
     Dosage: 25 mg, 1x/day

REACTIONS (10)
  - Heart rate increased [Unknown]
  - Generalised oedema [Unknown]
  - Dizziness [Unknown]
  - Dyspnoea [Unknown]
  - Balance disorder [Unknown]
  - Headache [Unknown]
  - Feeling abnormal [Unknown]
  - Drug intolerance [Unknown]
  - Malaise [Unknown]
  - Palpitations [Unknown]
